FAERS Safety Report 14586348 (Version 1)
Quarter: 2018Q1

REPORT INFORMATION
  Report Type: Spontaneous
  Country: US (occurrence: US)
  Receive Date: 20180301
  Receipt Date: 20180301
  Transmission Date: 20180509
  Serious: No
  Sender: FDA-Public Use
  Company Number: US-TEVA-751296ACC

PATIENT
  Age: 32 Year
  Sex: Female

DRUGS (1)
  1. NORTREL [Suspect]
     Active Substance: ETHINYL ESTRADIOL\NORETHINDRONE
     Indication: HAEMORRHAGIC DISORDER
     Dosage: DOSE STRENGTH:  1/0.035
     Dates: start: 2017, end: 20170313

REACTIONS (4)
  - Hypersensitivity [Recovering/Resolving]
  - Abdominal distension [Recovering/Resolving]
  - Swelling [Recovering/Resolving]
  - Rash pruritic [Recovered/Resolved]

NARRATIVE: CASE EVENT DATE: 2017
